FAERS Safety Report 16012724 (Version 10)
Quarter: 2020Q4

REPORT INFORMATION
  Report Type: Spontaneous
  Country: DE (occurrence: DE)
  Receive Date: 20190227
  Receipt Date: 20201216
  Transmission Date: 20210113
  Serious: Yes (Death, Life-Threatening, Hospitalization, Other)
  Sender: FDA-Public Use
  Company Number: DE-MYLANLABS-2019M1018208

PATIENT
  Age: 79 Year
  Sex: Female
  Weight: 72 kg

DRUGS (48)
  1. VALSARTAN. [Suspect]
     Active Substance: VALSARTAN
     Dosage: 320 OR 160 MG BID
     Route: 065
     Dates: start: 201708, end: 201708
  2. VALSARTAN. [Suspect]
     Active Substance: VALSARTAN
     Dosage: UNK
     Dates: start: 20170907
  3. BISOPROLOL [Concomitant]
     Active Substance: BISOPROLOL
     Dosage: 1/2-0-0 (AT HOSPITAL DISCHARGE)
     Route: 065
     Dates: start: 20181206
  4. L-THYROXIN                         /00068001/ [Concomitant]
     Active Substance: LEVOTHYROXINE
     Indication: PRODUCT USED FOR UNKNOWN INDICATION
     Dosage: UNK UNK, QD 1-0-0 (AT HOSPITAL DISCHARGE)
     Route: 065
     Dates: start: 20180505
  5. DIGIMERCK [Concomitant]
     Active Substance: DIGITOXIN
     Dosage: MINOR 0.07
     Dates: start: 20190117
  6. VALSARTAN MYLAN 160 MG FILMTABLETTEN [Suspect]
     Active Substance: VALSARTAN
     Indication: HYPERTENSION
     Dosage: 320 MILLIGRAM, BID
     Route: 065
     Dates: start: 2005
  7. VALSARTAN. [Suspect]
     Active Substance: VALSARTAN
     Dosage: UNK
     Dates: start: 20171122
  8. VALSARTAN MYLAN [Suspect]
     Active Substance: VALSARTAN
     Indication: HYPERTENSION
     Dosage: 160 MILLIGRAM, BID
     Route: 065
     Dates: start: 201310, end: 201708
  9. VALSARTAN MYLAN [Suspect]
     Active Substance: VALSARTAN
     Dosage: 160 MILLIGRAM, BID
     Route: 065
     Dates: start: 201402, end: 201708
  10. VALSARTAN. [Concomitant]
     Active Substance: VALSARTAN
     Dosage: 1-0-1 (AT HOSPITAL DISCHARGE)
     Dates: start: 20181206
  11. TAVOR EXPIDET [Concomitant]
     Active Substance: LORAZEPAM
     Dosage: UNK
     Dates: start: 20190218
  12. PANTOPRAZOL AL [Concomitant]
     Active Substance: PANTOPRAZOLE SODIUM
     Dosage: UNK
     Dates: start: 20110728
  13. VALSARTAN MYLAN 160 MG FILMTABLETTEN [Suspect]
     Active Substance: VALSARTAN
     Dosage: 2 X 80 MG.
     Dates: start: 201106
  14. VALSARTAN. [Suspect]
     Active Substance: VALSARTAN
     Indication: HYPERTENSION
     Dosage: 320 OR 160 MG BID
     Route: 065
     Dates: start: 20131213, end: 201708
  15. VALSARTAN. [Suspect]
     Active Substance: VALSARTAN
     Dosage: UNK
     Dates: start: 20181126
  16. VALSARTAN. [Suspect]
     Active Substance: VALSARTAN
     Dosage: UNK
     Dates: start: 20170505
  17. VALSARTAN MYLAN [Suspect]
     Active Substance: VALSARTAN
     Dosage: 160 MILLIGRAM, BID
     Route: 065
     Dates: start: 201403, end: 201708
  18. VALSARTAN. [Concomitant]
     Active Substance: VALSARTAN
     Indication: PRODUCT USED FOR UNKNOWN INDICATION
     Dosage: UNK, BID 1-0-1 (AT HOSPITAL DISCHARGE)
     Route: 065
     Dates: start: 20180505
  19. AMLODIPIN                          /00972401/ [Concomitant]
     Active Substance: AMLODIPINE BESYLATE
     Indication: PRODUCT USED FOR UNKNOWN INDICATION
     Dosage: UNK, BID 1-0-1 (AT HOSPITAL DISCHARGE)
     Route: 065
     Dates: start: 20180505
  20. ACTRAPHANE [Concomitant]
     Active Substance: INSULIN HUMAN
     Dosage: 30 INNOLET FER 5 X3 ML
     Dates: start: 20190104
  21. VALSARTAN. [Suspect]
     Active Substance: VALSARTAN
     Dosage: UNK
     Dates: start: 20180702
  22. MACROGOL [Concomitant]
     Active Substance: POLYETHYLENE GLYCOLS
     Dosage: UNK
     Dates: start: 20190214
  23. ELIQUIS [Concomitant]
     Active Substance: APIXABAN
     Dosage: UNK
     Dates: start: 20181220
  24. CORTISONE [Concomitant]
     Active Substance: CORTISONE
     Dosage: UNK
     Dates: start: 20151013, end: 20151013
  25. VALSARTAN. [Suspect]
     Active Substance: VALSARTAN
     Dosage: UNK (160 IN MORNING AND 80 MG IN EVENING)
  26. VALSARTAN. [Suspect]
     Active Substance: VALSARTAN
     Indication: HYPERTENSION
     Dosage: UNK (NOVARTIS AG)
  27. VALSARTAN. [Suspect]
     Active Substance: VALSARTAN
     Indication: PRODUCT USED FOR UNKNOWN INDICATION
     Dosage: 160 MILLIGRAM, BID (160MG IN MORNING AND 160 IN EVENING)
  28. BISOPROLOL [Concomitant]
     Active Substance: BISOPROLOL
     Indication: PRODUCT USED FOR UNKNOWN INDICATION
     Dosage: 1/2-0-0 AT HOSPITAL DISCHARGE (10/25)
     Route: 065
     Dates: start: 20180505
  29. ACTRAPID [Concomitant]
     Active Substance: INSULIN HUMAN
     Indication: PRODUCT USED FOR UNKNOWN INDICATION
     Dosage: ACCORDING TO SCHEME (AT HOSPITAL DISCHARGE)
     Route: 065
     Dates: start: 20181206
  30. VALSARTAN. [Suspect]
     Active Substance: VALSARTAN
     Indication: HYPERTENSION
     Dosage: 80 MILLIGRAM, BID (80 MG IN MORNING AND 80 MG IN EVENING)
     Dates: start: 2010
  31. VALSARTAN. [Suspect]
     Active Substance: VALSARTAN
     Dosage: UNK
     Dates: start: 20180313
  32. VALSARTAN. [Suspect]
     Active Substance: VALSARTAN
     Dosage: UNK
     Dates: start: 20170628
  33. VALSARTAN MYLAN 160 MG FILMTABLETTEN [Suspect]
     Active Substance: VALSARTAN
     Dosage: 160 MILLIGRAM, BID
     Route: 065
     Dates: start: 201702, end: 201807
  34. VALSARTAN MYLAN 160 MG FILMTABLETTEN [Suspect]
     Active Substance: VALSARTAN
     Dosage: UNK
     Dates: start: 20130204
  35. VALSARTAN. [Suspect]
     Active Substance: VALSARTAN
     Dosage: 320 OR 160 MG BID
     Dates: start: 201312
  36. AMLODIPIN                          /00972401/ [Concomitant]
     Active Substance: AMLODIPINE BESYLATE
     Dosage: 1-0-1 (AT HOSPITAL DISCHARGE)
     Route: 065
     Dates: start: 20181206
  37. HCT [Concomitant]
     Active Substance: HYDROCHLOROTHIAZIDE
     Indication: PRODUCT USED FOR UNKNOWN INDICATION
     Dosage: 1/2-0-0 (AT HOSPITAL DISCHARGE)
     Route: 065
     Dates: start: 20181206
  38. BISOPROLOL DURA PLUS [Concomitant]
     Dosage: UNK
  39. NEURAX [Concomitant]
     Dosage: UNK
     Dates: start: 20190214
  40. CORTISONE [Concomitant]
     Active Substance: CORTISONE
     Indication: ERYTHEMA
     Dosage: UNK
     Dates: start: 20151009, end: 20151009
  41. VALSARTAN. [Suspect]
     Active Substance: VALSARTAN
     Dosage: UNK
     Dates: start: 20170206
  42. L-THYROXIN                         /00068001/ [Concomitant]
     Active Substance: LEVOTHYROXINE
     Dosage: UNK UNK, QD 1-0-0 (AT HOSPITAL DISCHARGE)
     Route: 065
     Dates: start: 20181206
  43. PANTOZOL [Concomitant]
     Active Substance: PANTOPRAZOLE SODIUM
     Indication: PRODUCT USED FOR UNKNOWN INDICATION
     Dosage: UNK UNK, QD 1-0-0 (AT HOSPITAL DISCHARGE)
     Route: 065
     Dates: start: 20181206
  44. DEXAMETHASON                       /00016001/ [Concomitant]
     Active Substance: DEXAMETHASONE
     Indication: PRODUCT USED FOR UNKNOWN INDICATION
     Dosage: UNK, TID 1-1-1 (AT HOSPITAL DISCHARGE)
     Route: 065
     Dates: start: 20181206
  45. HYDROMORPHONE [Concomitant]
     Active Substance: HYDROMORPHONE
     Dosage: UNK
     Dates: start: 20190214
  46. HALOPERIDOL. [Concomitant]
     Active Substance: HALOPERIDOL
     Dosage: UNK
     Dates: start: 20190214
  47. ASPIRIN. [Concomitant]
     Active Substance: ASPIRIN
     Indication: TRANSIENT ISCHAEMIC ATTACK
     Dosage: UNK
  48. CLEXANE [Concomitant]
     Active Substance: ENOXAPARIN SODIUM
     Dosage: UNK

REACTIONS (44)
  - Erysipelas [Unknown]
  - Drug intolerance [Unknown]
  - Tinnitus [Unknown]
  - Vomiting [Unknown]
  - Pruritus [Unknown]
  - Renal neoplasm [Unknown]
  - Cognitive disorder [Unknown]
  - Joint swelling [Unknown]
  - Urinary tract infection [Unknown]
  - External ear disorder [Unknown]
  - Urinary retention [Unknown]
  - Basal cell carcinoma [Unknown]
  - Renal cyst [Unknown]
  - Visual impairment [Unknown]
  - Osteoarthritis [Unknown]
  - Functional gastrointestinal disorder [Unknown]
  - Large intestine infection [Unknown]
  - Anaemia [Unknown]
  - Rash [Unknown]
  - Renal cell carcinoma [Fatal]
  - Metastases to lung [Unknown]
  - Metastases to central nervous system [Unknown]
  - Personality change [Unknown]
  - Blood glucose increased [Unknown]
  - Cholelithiasis [Unknown]
  - Bladder disorder [Unknown]
  - General physical health deterioration [Unknown]
  - Postoperative renal failure [Unknown]
  - Loss of personal independence in daily activities [Unknown]
  - Melanocytic naevus [Unknown]
  - Dysuria [Unknown]
  - Brain oedema [Unknown]
  - Hypoaesthesia [Unknown]
  - Hypertension [Unknown]
  - Tendon rupture [Unknown]
  - Hypotension [Unknown]
  - Left ventricular hypertrophy [Unknown]
  - Cardiac failure [Unknown]
  - Aortic dilatation [Unknown]
  - Inflammatory marker increased [Unknown]
  - Varicose vein [Unknown]
  - Meniscal degeneration [Unknown]
  - Pustule [Unknown]
  - Hypothyroidism [Unknown]

NARRATIVE: CASE EVENT DATE: 20100122
